FAERS Safety Report 15302449 (Version 3)
Quarter: 2019Q2

REPORT INFORMATION
  Report Type: Report from Study
  Country: JP (occurrence: JP)
  Receive Date: 20180821
  Receipt Date: 20190513
  Transmission Date: 20190711
  Serious: Yes (Hospitalization)
  Sender: FDA-Public Use
  Company Number: JP-EISAI MEDICAL RESEARCH-EC-2018-044256

PATIENT
  Age: 86 Year
  Sex: Female

DRUGS (6)
  1. ROZEREM [Concomitant]
     Active Substance: RAMELTEON
  2. MYSLEE [Concomitant]
     Active Substance: ZOLPIDEM TARTRATE
  3. BAYASPIRIN [Concomitant]
     Active Substance: ASPIRIN
  4. FYCOMPA [Suspect]
     Active Substance: PERAMPANEL
     Indication: EPILEPSY
     Route: 048
     Dates: start: 20170927, end: 20171105
  5. DEPAKENE-R [Concomitant]
     Active Substance: VALPROATE SODIUM
  6. TAKEPRON [Concomitant]
     Active Substance: LANSOPRAZOLE

REACTIONS (2)
  - Fall [Unknown]
  - Fracture [Unknown]

NARRATIVE: CASE EVENT DATE: 20171105
